FAERS Safety Report 5086361-1 (Version None)
Quarter: 2006Q3

REPORT INFORMATION
  Report Type: 
  Country: None (occurrence: None)
  Receive Date: 20060823
  Receipt Date: 20060816
  Transmission Date: 20061208
  Serious: Yes (Hospitalization)
  Sender: FDA-Public Use
  Company Number: GB-BRISTOL-MYERS SQUIBB COMPANY-13476304

PATIENT
  Age: 40 Year
  Sex: Male

DRUGS (4)
  1. SUSTIVA [Suspect]
     Route: 048
  2. ABACAVIR [Concomitant]
  3. LAMIVUDINE [Concomitant]
  4. SEPTRIN [Concomitant]
     Indication: INFECTION PROPHYLAXIS

REACTIONS (3)
  - HYPOTENSION [None]
  - OXYGEN SATURATION DECREASED [None]
  - PYREXIA [None]
